FAERS Safety Report 12077572 (Version 1)
Quarter: 2016Q1

REPORT INFORMATION
  Report Type: Report from Study
  Country: AU (occurrence: AU)
  Receive Date: 20160215
  Receipt Date: 20160215
  Transmission Date: 20160526
  Serious: Yes (Hospitalization)
  Sender: FDA-Public Use
  Company Number: AU-KADMON PHARMACEUTICALS, LLC-KAD201601-000304

PATIENT
  Age: 59 Year

DRUGS (5)
  1. PERINDOPRIL [Concomitant]
     Active Substance: PERINDOPRIL
     Indication: HYPERTENSION
     Dates: start: 2014
  2. VIEKIRA PAK [Suspect]
     Active Substance: DASABUVIR\OMBITASVIR\PARITAPREVIR\RITONAVIR
     Indication: HEPATITIS C
     Dosage: TABLET
     Route: 048
     Dates: start: 20151017, end: 20160101
  3. RIBAVIRIN. [Suspect]
     Active Substance: RIBAVIRIN
     Indication: HEPATITIS C
     Dosage: TABLET
     Route: 048
     Dates: start: 20151017, end: 20160101
  4. FLUTICASONE (SERETIDE) [Concomitant]
     Indication: ASTHMA
     Dates: end: 20160101
  5. ULTIBRO BREEZHALER [Concomitant]
     Active Substance: GLYCOPYRRONIUM\INDACATEROL

REACTIONS (8)
  - Blood cortisol decreased [Unknown]
  - Tremor [Unknown]
  - Asthma [Unknown]
  - Adrenal suppression [Unknown]
  - Cortisol free urine decreased [Unknown]
  - Cushing^s syndrome [Unknown]
  - Lower respiratory tract infection [Unknown]
  - Lethargy [Unknown]

NARRATIVE: CASE EVENT DATE: 20151230
